FAERS Safety Report 4618418-0 (Version None)
Quarter: 2005Q2

REPORT INFORMATION
  Report Type: 
  Country: None (occurrence: None)
  Receive Date: 20050311
  Receipt Date: 20041101
  Transmission Date: 20051028
  Serious: No
  Sender: FDA-Public Use
  Company Number: 2004-BP-10399BP

PATIENT
  Age: 70 Year
  Sex: Male
  Weight: 116.5 kg

DRUGS (8)
  1. SPIRIVA [Suspect]
     Indication: CHRONIC OBSTRUCTIVE PULMONARY DISEASE
     Dosage: (18 MCG), IH
     Route: 055
     Dates: start: 20041014, end: 20041018
  2. ALBUTEROL W/ IPRATROPIUM (SALBUTAMOL W/ IPRATROPIUM) [Concomitant]
  3. ADVAIR DISKUS 100/50 [Concomitant]
  4. ACETYLSALICYLIC ACID SRT [Concomitant]
  5. MULITVITAMINS (MULTIVITAMINS) [Concomitant]
  6. VITAMIN E [Concomitant]
  7. FIBORAN (APRINDINE HYDROCHLORIDE) [Concomitant]
  8. FLAXSEED OIL (LINUM USITATISSIMUM SEED OIL) [Concomitant]

REACTIONS (4)
  - EYE SWELLING [None]
  - RASH PRURITIC [None]
  - THROAT TIGHTNESS [None]
  - URTICARIA [None]
